FAERS Safety Report 8989194 (Version 1)
Quarter: 2012Q4

REPORT INFORMATION
  Report Type: Report from Study
  Country: US (occurrence: US)
  Receive Date: 20121228
  Receipt Date: 20121228
  Transmission Date: 20130627
  Serious: Yes (Hospitalization)
  Sender: FDA-Public Use
  Company Number: US-JNJFOC-20121211522

PATIENT
  Age: 16 Year
  Sex: Male
  Weight: 35.2 kg

DRUGS (7)
  1. REMICADE [Suspect]
     Indication: INFLAMMATORY BOWEL DISEASE
     Route: 042
     Dates: start: 20120108
  2. REMICADE [Suspect]
     Indication: INFLAMMATORY BOWEL DISEASE
     Route: 042
     Dates: start: 20121211
  3. 5-ASA [Concomitant]
     Route: 048
  4. BUDESONIDE [Concomitant]
  5. FERROUS SULFATE [Concomitant]
  6. OMEPRAZOLE [Concomitant]
  7. VITAMIN D [Concomitant]

REACTIONS (1)
  - Iron deficiency anaemia [Recovered/Resolved]
